FAERS Safety Report 9325019 (Version 1)
Quarter: 2013Q2

REPORT INFORMATION
  Report Type: Spontaneous
  Country: ES (occurrence: None)
  Receive Date: 20130530
  Receipt Date: 20130530
  Transmission Date: 20140414
  Serious: Yes (Life-Threatening, Other)
  Sender: FDA-Public Use
  Company Number: 2013-2063

PATIENT
  Age: 27 Year
  Sex: Male

DRUGS (5)
  1. DYSPORT (BOTULINUM TOXIN TYPE A) (BOTULINUM TOXIN TYPE A) [Suspect]
     Indication: MUSCLE SPASTICITY
     Dosage: 1350 UNITS (13150 UNITS, 1 IN 1
     Dates: start: 20130415, end: 20130415
  2. KEPPRA (LEVETIRACETAM) [Concomitant]
  3. SERTRALINE (SERTRALINE) (SERTRALINE) [Concomitant]
  4. QUETIAPINE (QUETIAPINE) (QUETIAPINE) [Concomitant]
  5. OMEPRAZOLE (OMEPRAZOLE) [Concomitant]

REACTIONS (4)
  - Eyelid ptosis [None]
  - Dysphagia [None]
  - Asthenia [None]
  - Fatigue [None]
